FAERS Safety Report 13740978 (Version 3)
Quarter: 2017Q3

REPORT INFORMATION
  Report Type: Report from Study
  Country: US (occurrence: US)
  Receive Date: 20170711
  Receipt Date: 20170826
  Transmission Date: 20171127
  Serious: Yes (Death, Life-Threatening, Hospitalization, Other)
  Sender: FDA-Public Use
  Company Number: US-AMGEN-USASL2017103011

PATIENT
  Age: 56 Year
  Sex: Female
  Weight: 86.17 kg

DRUGS (3)
  1. KYPROLIS [Suspect]
     Active Substance: CARFILZOMIB
     Indication: PLASMA CELL MYELOMA
     Dosage: 54 MG, TWICE WEEKLY FOR THREE WEEKS WITH ONE WEEK OFF
     Route: 042
     Dates: start: 20170227, end: 20170404
  2. POMALYST [Concomitant]
     Active Substance: POMALIDOMIDE
     Indication: PLASMA CELL MYELOMA
     Dosage: 4 MG, QD 21 DAYS, OFF 7
     Dates: start: 20170227, end: 20170404
  3. DEXAMETHASONE. [Concomitant]
     Active Substance: DEXAMETHASONE
     Indication: PLASMA CELL MYELOMA
     Dosage: 40 MG, QWK
     Dates: start: 20170227, end: 20170404

REACTIONS (3)
  - Sepsis [Fatal]
  - Respiratory distress [Fatal]
  - Cholecystitis [Unknown]

NARRATIVE: CASE EVENT DATE: 2017
